FAERS Safety Report 7438065-5 (Version None)
Quarter: 2011Q2

REPORT INFORMATION
  Report Type: 
  Country: None (occurrence: None)
  Receive Date: 20110426
  Receipt Date: 20110422
  Transmission Date: 20111010
  Serious: Yes (Death, Other)
  Sender: FDA-Public Use
  Company Number: PHHY2011JP31409

PATIENT
  Age: 35 Year
  Sex: Male
  Weight: 75 kg

DRUGS (1)
  1. CARBAMAZEPINE [Suspect]
     Indication: ADJUSTMENT DISORDER
     Dosage: UNK

REACTIONS (4)
  - JOINT STIFFNESS [None]
  - SKIN EXFOLIATION [None]
  - OEDEMA [None]
  - TOXICITY TO VARIOUS AGENTS [None]
